FAERS Safety Report 7153853-0 (Version None)
Quarter: 2010Q4

REPORT INFORMATION
  Report Type: 
  Country: None (occurrence: None)
  Receive Date: 20101213
  Receipt Date: 20101018
  Transmission Date: 20110411
  Serious: No
  Sender: FDA-Public Use
  Company Number: US-ABBOTT-10P-163-0679062-00

PATIENT
  Sex: Female
  Weight: 100.33 kg

DRUGS (1)
  1. MERIDIA [Suspect]
     Indication: WEIGHT CONTROL
     Dates: start: 20100701, end: 20101013

REACTIONS (5)
  - CONSTIPATION [None]
  - DRUG DOSE OMISSION [None]
  - HAEMATOCHEZIA [None]
  - HAEMORRHOIDS [None]
  - SOMNOLENCE [None]
